FAERS Safety Report 5242190-7 (Version None)
Quarter: 2007Q1

REPORT INFORMATION
  Report Type: 
  Country: None (occurrence: None)
  Receive Date: 20070213
  Receipt Date: 20070207
  Transmission Date: 20070707
  Serious: Yes (Life-Threatening)
  Sender: FDA-Public Use
  Company Number: THQ2007A00097

PATIENT
  Age: 61 Year
  Sex: Female

DRUGS (8)
  1. LANSOPRAZOLE [Suspect]
     Dosage: 30 MG (1 D); PER ORAL
     Route: 048
     Dates: end: 20061217
  2. SOLUPRED (PREDNISOLONE SODIUM SULFOBENZOATE) (TABLETS) [Suspect]
     Dosage: 20 MG (1 D); PER ORAL
     Route: 048
  3. ATARAX [Suspect]
     Dosage: PER ORAL
     Route: 048
  4. GLUCOPHAGE [Suspect]
     Dosage: 3000 MG (1 D) PER ORAL
     Route: 048
     Dates: end: 20061217
  5. SOLIAN (AMISULPRIDE) (TABLETS) [Suspect]
     Dosage: 200 MG (1 D); PER ORAL, PER ORAL
     Route: 048
     Dates: end: 20061217
  6. SOLIAN (AMISULPRIDE) (TABLETS) [Suspect]
     Dosage: 200 MG (1 D); PER ORAL, PER ORAL
     Route: 048
     Dates: start: 20061227
  7. TEGELINE (IMMUNOGLOBULIN HUMAN NORMAL) (INJECTION) [Suspect]
     Indication: IDIOPATHIC THROMBOCYTOPENIC PURPURA
     Dosage: 80 MG (1 D); INTRAVENOUS
     Route: 042
     Dates: start: 20061213, end: 20061215
  8. POTASSIUM ACETATE [Concomitant]

REACTIONS (2)
  - HAEMODIALYSIS [None]
  - RENAL FAILURE ACUTE [None]
